FAERS Safety Report 4457307-1 (Version None)
Quarter: 2004Q3

REPORT INFORMATION
  Report Type: 
  Country: None (occurrence: None)
  Receive Date: 20040922
  Receipt Date: 20040913
  Transmission Date: 20050211
  Serious: Yes (Death, Hospitalization, Other)
  Sender: FDA-Public Use
  Company Number: US-JNJFOC-20040903459

PATIENT
  Age: 48 Year
  Sex: Male

DRUGS (1)
  1. EXTRA STRENGTH TYLENOL [Suspect]
     Indication: FIBROMYALGIA
     Dosage: 5 G, 1 IN 1 DAY, ORAL
     Route: 048

REACTIONS (15)
  - ABDOMINAL PAIN [None]
  - BLOOD PRESSURE DIASTOLIC DECREASED [None]
  - BLOOD PRESSURE SYSTOLIC INCREASED [None]
  - CHILLS [None]
  - CHRONIC OBSTRUCTIVE AIRWAYS DISEASE [None]
  - DRUG TOXICITY [None]
  - DYSPNOEA [None]
  - GLASGOW COMA SCALE ABNORMAL [None]
  - HEPATIC FAILURE [None]
  - HEPATORENAL FAILURE [None]
  - MULTI-ORGAN FAILURE [None]
  - OPIATES POSITIVE [None]
  - OVERDOSE [None]
  - PYREXIA [None]
  - WHEEZING [None]
